FAERS Safety Report 10511909 (Version 1)
Quarter: 2014Q3

REPORT INFORMATION
  Report Type: Spontaneous
  Country: US (occurrence: None)
  Receive Date: 20140926
  Receipt Date: 20140926
  Transmission Date: 20150326
  Serious: No
  Sender: FDA-Public Use
  Company Number: 1000068420

PATIENT
  Age: 67 Year
  Sex: Female

DRUGS (5)
  1. ZOFRAN(ONDANSETRON) [Concomitant]
  2. LOPRESSOR(METOPROLOL TARTRATE) [Concomitant]
  3. LINZESS [Suspect]
     Active Substance: LINACLOTIDE
     Indication: IRRITABLE BOWEL SYNDROME
     Route: 048
     Dates: start: 20140619
  4. NORTRIPTYLINE [Concomitant]
     Active Substance: NORTRIPTYLINE
  5. BUSPIRONE(BUSPIRONE) [Concomitant]

REACTIONS (1)
  - Rash [None]

NARRATIVE: CASE EVENT DATE: 20140621
